FAERS Safety Report 21484086 (Version 2)
Quarter: 2022Q4

REPORT INFORMATION
  Report Type: Report from Study
  Country: DE (occurrence: DE)
  Receive Date: 20221020
  Receipt Date: 20221201
  Transmission Date: 20230113
  Serious: Yes (Other)
  Sender: FDA-Public Use
  Company Number: DE-002147023-NVSC2019DE077799

PATIENT
  Sex: Female
  Weight: 56 kg

DRUGS (6)
  1. LETROZOLE [Suspect]
     Active Substance: LETROZOLE
     Indication: Breast cancer
     Dosage: 2.5 MG, QD
     Route: 048
     Dates: start: 20191009, end: 20211215
  2. KISQALI [Suspect]
     Active Substance: RIBOCICLIB
     Indication: Breast cancer
     Dosage: 600 MG (SCHEME 21 DAYS INTAKE, 7 DAYS PAUSE)
     Route: 048
     Dates: start: 20191105, end: 20191226
  3. KISQALI [Suspect]
     Active Substance: RIBOCICLIB
     Dosage: 600 MG (SCHEME 21 DAYS INTAKE, 7 DAYS PAUSE)
     Route: 065
     Dates: start: 20200103, end: 20200317
  4. KISQALI [Suspect]
     Active Substance: RIBOCICLIB
     Dosage: 400 MG (SCHEME 21 DAYS INTAKE, 7 DAYS PAUSE)
     Route: 048
     Dates: start: 20200318, end: 20200601
  5. KISQALI [Suspect]
     Active Substance: RIBOCICLIB
     Dosage: 200 MG (SCHEME 21 DAYS INTAKE, 7 DAYS PAUSE)
     Route: 048
     Dates: start: 20200701, end: 20200728
  6. KISQALI [Suspect]
     Active Substance: RIBOCICLIB
     Dosage: 200 MG (SCHEME 21 DAYS INTAKE, 7 DAYS PAUSE)
     Route: 048
     Dates: start: 20200825, end: 20211215

REACTIONS (6)
  - White blood cell count decreased [Recovering/Resolving]
  - Mucosal inflammation [Recovering/Resolving]
  - Alopecia [Not Recovered/Not Resolved]
  - Asthenia [Unknown]
  - Hypoaesthesia [Recovering/Resolving]
  - Dizziness [Recovering/Resolving]

NARRATIVE: CASE EVENT DATE: 20191119
